FAERS Safety Report 12783262 (Version 9)
Quarter: 2017Q1

REPORT INFORMATION
  Report Type: Report from Study
  Country: DE (occurrence: DE)
  Receive Date: 20160927
  Receipt Date: 20170330
  Transmission Date: 20170428
  Serious: Yes (Hospitalization, Other)
  Sender: FDA-Public Use
  Company Number: PHHY2016DE131483

PATIENT
  Sex: Female
  Weight: 65 kg

DRUGS (7)
  1. ASS-RATIOPHARM TAH [Concomitant]
     Indication: PERIPHERAL VASCULAR DISORDER
     Dosage: 50 MG, QD
     Route: 048
     Dates: start: 1990
  2. DUROGESIC [Concomitant]
     Active Substance: FENTANYL
     Indication: TUMOUR PAIN
     Dosage: 12.5 MG, EVERY THIRD DAY
     Route: 061
     Dates: start: 201509, end: 20161107
  3. DUROGESIC [Concomitant]
     Active Substance: FENTANYL
     Dosage: 25 MG, EVERY THIRD DAY
     Route: 061
     Dates: start: 20161108
  4. TRAMAL [Concomitant]
     Active Substance: TRAMADOL
     Indication: TUMOUR PAIN
     Dosage: UNK UNK, PRN
     Dates: start: 20161208
  5. VOTRIENT [Suspect]
     Active Substance: PAZOPANIB HYDROCHLORIDE
     Indication: METASTATIC RENAL CELL CARCINOMA
     Dosage: 800 MG, QD
     Route: 048
     Dates: start: 20160721, end: 20160906
  6. VOTRIENT [Suspect]
     Active Substance: PAZOPANIB HYDROCHLORIDE
     Dosage: 200 MG, QD
     Route: 048
     Dates: start: 20161109, end: 20161128
  7. VOTRIENT [Suspect]
     Active Substance: PAZOPANIB HYDROCHLORIDE
     Dosage: UNK
     Route: 065
     Dates: start: 20161129, end: 20161212

REACTIONS (4)
  - Jaundice [Recovering/Resolving]
  - Hepatic enzyme increased [Recovering/Resolving]
  - Hepatitis cholestatic [Recovering/Resolving]
  - Duodenal ulcer [Recovered/Resolved]

NARRATIVE: CASE EVENT DATE: 20160906
